FAERS Safety Report 8901203 (Version 1)
Quarter: 2012Q4

REPORT INFORMATION
  Report Type: 
  Country: US (occurrence: US)
  Receive Date: 20121109
  Receipt Date: 20121109
  Transmission Date: 20130627
  Serious: No
  Sender: FDA-Public Use
  Company Number: US-PFIZER INC-2012277963

PATIENT

DRUGS (1)
  1. XALKORI [Suspect]
     Dosage: UNK

REACTIONS (3)
  - Asthenia [Unknown]
  - Dizziness [Unknown]
  - Dyspnoea [Unknown]
